FAERS Safety Report 18450232 (Version 2)
Quarter: 2020Q4

REPORT INFORMATION
  Report Type: Spontaneous
  Country: EG (occurrence: EG)
  Receive Date: 20201030
  Receipt Date: 20201116
  Transmission Date: 20210114
  Serious: Yes (Life-Threatening, Hospitalization, Disabling)
  Sender: FDA-Public Use
  Company Number: EG-NOVOPROD-762464

PATIENT
  Age: 852 Month
  Sex: Male

DRUGS (3)
  1. VITAMIN B12 [COBAMAMIDE] [Concomitant]
     Indication: NEURITIS
     Dosage: 1 AMPULE EACH 3 DAYS, START DATE : 10-15 YEARS AGO.
     Route: 030
  2. MIXTARD 30 HM PENFILL [Suspect]
     Active Substance: INSULIN HUMAN
     Dosage: 55 IU, QD (30U MORNING AND 25 U NIGHT.)
     Route: 058
     Dates: start: 1999
  3. MIXTARD 30 HM PENFILL [Suspect]
     Active Substance: INSULIN HUMAN
     Indication: DIABETES MELLITUS
     Dosage: 30 IU, QD (MORNING)
     Route: 058
     Dates: start: 1999

REACTIONS (3)
  - Hemiplegia [Recovered/Resolved with Sequelae]
  - Atrial fibrillation [Recovered/Resolved with Sequelae]
  - Myocardial infarction [Recovered/Resolved with Sequelae]

NARRATIVE: CASE EVENT DATE: 2015
